FAERS Safety Report 8265044-0 (Version None)
Quarter: 2012Q2

REPORT INFORMATION
  Report Type: 
  Country: None (occurrence: None)
  Receive Date: 20120406
  Receipt Date: 20120404
  Transmission Date: 20120825
  Serious: Yes (Death, Other)
  Sender: FDA-Public Use
  Company Number: PHHY2010JP30256

PATIENT
  Sex: Male

DRUGS (2)
  1. WARFARIN SODIUM [Suspect]
     Dosage: UNK UKN, UNK
     Route: 048
  2. AFINITOR [Suspect]
     Indication: METASTATIC RENAL CELL CARCINOMA
     Dosage: 10 MG, DAILY
     Route: 048
     Dates: start: 20100416, end: 20100501

REACTIONS (10)
  - DISSEMINATED INTRAVASCULAR COAGULATION [None]
  - CEREBRAL HAEMORRHAGE [None]
  - BLOOD CREATININE INCREASED [None]
  - ACTIVATED PARTIAL THROMBOPLASTIN TIME PROLONGED [None]
  - RENAL IMPAIRMENT [None]
  - PROTHROMBIN TIME PROLONGED [None]
  - FIBRIN D DIMER INCREASED [None]
  - BLOOD UREA INCREASED [None]
  - FIBRIN DEGRADATION PRODUCTS INCREASED [None]
  - EPISTAXIS [None]
